FAERS Safety Report 7409386-7 (Version None)
Quarter: 2011Q2

REPORT INFORMATION
  Report Type: 
  Country: None (occurrence: None)
  Receive Date: 20110412
  Receipt Date: 20110325
  Transmission Date: 20111010
  Serious: Yes (Other)
  Sender: FDA-Public Use
  Company Number: US-BAYER-200943343NA

PATIENT
  Sex: Male

DRUGS (9)
  1. TRASYLOL [Suspect]
     Indication: CARDIAC OPERATION
     Route: 042
     Dates: start: 20050922
  2. NORVASC [Concomitant]
     Dosage: 5 MG, BID
     Route: 048
  3. LOVENOX [Concomitant]
     Dosage: 1 MG/KG, BID
     Route: 058
     Dates: start: 20050816, end: 20050818
  4. METHOTREXATE [Concomitant]
     Dosage: 25 MG, BID
     Route: 048
  5. PREDNISONE [Concomitant]
     Route: 048
  6. COUMADIN [Concomitant]
     Dosage: 5 MG, UNK
     Route: 048
  7. LISINOPRIL [Concomitant]
     Dosage: 5 MG, BID
     Route: 048
  8. TOPROL-XL [Concomitant]
     Dosage: 100 MG, UNK
     Route: 048
  9. ENBREL [Concomitant]
     Dosage: UNK
     Route: 058
     Dates: start: 20030101

REACTIONS (5)
  - RENAL FAILURE ACUTE [None]
  - INJURY [None]
  - UNEVALUABLE EVENT [None]
  - RENAL FAILURE [None]
  - PAIN [None]
